FAERS Safety Report 9080886 (Version 1)
Quarter: 2013Q1

REPORT INFORMATION
  Report Type: Report from Study
  Country: US (occurrence: US)
  Receive Date: 20130130
  Receipt Date: 20130130
  Transmission Date: 20140127
  Serious: No
  Sender: FDA-Public Use
  Company Number: US-ABBOTT-12P-163-0969170-00

PATIENT
  Age: 42 Year
  Sex: Female

DRUGS (8)
  1. HUMIRA 40 MG/0.8 ML PEN [Suspect]
     Indication: PSORIATIC ARTHROPATHY
     Dates: start: 20110824
  2. VESICARE [Concomitant]
     Indication: URINARY INCONTINENCE
     Dosage: 10 MG DAILY
  3. FLEXERIL [Concomitant]
     Indication: MUSCLE SPASMS
  4. FLEXERIL [Concomitant]
  5. OMEPRAZOLE [Concomitant]
     Indication: GASTROOESOPHAGEAL REFLUX DISEASE
  6. ZYRTEC [Concomitant]
     Indication: SEASONAL ALLERGY
     Dosage: 10 MG DAILY
  7. SUDAFED [Concomitant]
     Indication: SEASONAL ALLERGY
     Dosage: DAILY
  8. PHENAZOPYRIDINE [Concomitant]
     Indication: AUTOMATIC BLADDER
     Dosage: 95 MG, 2 TABS AT BEDTIME, AS NEEDED

REACTIONS (3)
  - Psoriasis [Not Recovered/Not Resolved]
  - Arthritis [Not Recovered/Not Resolved]
  - Diarrhoea [Not Recovered/Not Resolved]
